FAERS Safety Report 11993720 (Version 1)
Quarter: 2016Q1

REPORT INFORMATION
  Report Type: Spontaneous
  Country: US (occurrence: None)
  Receive Date: 20160202
  Receipt Date: 20160202
  Transmission Date: 20160526
  Serious: Yes (Disabling)
  Sender: FDA-Public Use
  Company Number: None

PATIENT
  Age: 66 Year
  Sex: Male
  Weight: 86.18 kg

DRUGS (12)
  1. VITAMIN B12 [Concomitant]
     Active Substance: CYANOCOBALAMIN
  2. KIRKLAND MATURE MULTI [Concomitant]
  3. GINKGO BILOBA [Concomitant]
     Active Substance: GINKGO
  4. POTASSIUM GLUCONATE [Concomitant]
     Active Substance: POTASSIUM GLUCONATE
  5. VITAMIN D3 [Concomitant]
     Active Substance: CHOLECALCIFEROL
  6. TRAZODONE [Suspect]
     Active Substance: TRAZODONE HYDROCHLORIDE
     Indication: INSOMNIA
     Route: 048
     Dates: start: 20151001, end: 20151003
  7. SILDENAFIL CITRATE 100 MG [Suspect]
     Active Substance: SILDENAFIL CITRATE
     Indication: ERECTILE DYSFUNCTION
     Route: 048
     Dates: start: 20100201, end: 20151003
  8. L-ARGININE [Concomitant]
     Active Substance: ARGININE
  9. GLUCOSAMINE SULFATE [Concomitant]
     Active Substance: GLUCOSAMINE SULFATE
  10. GINSENG [Concomitant]
     Active Substance: ASIAN GINSENG
  11. CHELATED ZINC [Concomitant]
  12. ALBION CHELATED MAGNESIUM [Concomitant]

REACTIONS (7)
  - Tinnitus [None]
  - Photophobia [None]
  - Lethargy [None]
  - Insomnia [None]
  - Headache [None]
  - Pain [None]
  - Dizziness [None]

NARRATIVE: CASE EVENT DATE: 20151001
